FAERS Safety Report 24383662 (Version 1)
Quarter: 2024Q4

REPORT INFORMATION
  Report Type: Report from Study
  Country: US (occurrence: US)
  Receive Date: 20241001
  Receipt Date: 20241001
  Transmission Date: 20250114
  Serious: Yes (Death)
  Sender: JOHNSON AND JOHNSON
  Company Number: US-JNJFOC-20240960228

PATIENT
  Age: 63 Year
  Sex: Male

DRUGS (1)
  1. CILTACABTAGENE AUTOLEUCEL [Suspect]
     Active Substance: CILTACABTAGENE AUTOLEUCEL
     Indication: Plasma cell myeloma
     Dosage: 54.74*19^6 CAR-T CELLS
     Route: 042
     Dates: start: 2023

REACTIONS (7)
  - Respiratory failure [Fatal]
  - Septic shock [Fatal]
  - Cardiac failure [Fatal]
  - Multiple organ dysfunction syndrome [Fatal]
  - Viral infection [Fatal]
  - Infection [Fatal]
  - Plasma cell myeloma [Fatal]
